FAERS Safety Report 13055762 (Version 1)
Quarter: 2016Q4

REPORT INFORMATION
  Report Type: Spontaneous
  Country: US (occurrence: US)
  Receive Date: 20161222
  Receipt Date: 20161222
  Transmission Date: 20170207
  Serious: Yes (Other)
  Sender: FDA-Public Use
  Company Number: US-TEVA-721554USA

PATIENT
  Sex: Male

DRUGS (1)
  1. INDOMETACIN [Suspect]
     Active Substance: INDOMETHACIN
     Route: 065

REACTIONS (5)
  - Coeliac disease [Unknown]
  - Loss of consciousness [Unknown]
  - Malaise [Unknown]
  - Immune system disorder [Unknown]
  - Gastric disorder [Unknown]
